FAERS Safety Report 26082646 (Version 1)
Quarter: 2025Q4

REPORT INFORMATION
  Report Type: Report from Study
  Country: EU (occurrence: EU)
  Receive Date: 20251124
  Receipt Date: 20251124
  Transmission Date: 20260118
  Serious: Yes (Hospitalization)
  Sender: PFIZER
  Company Number: EU-PFM-2025-01500

PATIENT
  Sex: Male
  Weight: 75 kg

DRUGS (5)
  1. BRAFTOVI [Suspect]
     Active Substance: ENCORAFENIB
     Indication: Colorectal cancer
     Dosage: UNK, DAILY
     Route: 048
     Dates: start: 20241111
  2. CETUXIMAB [Suspect]
     Active Substance: CETUXIMAB
     Indication: Colorectal cancer
     Dosage: UNK, WEEKLY
     Route: 042
     Dates: start: 20241111
  3. CITALOPRAM [Concomitant]
     Active Substance: CITALOPRAM
     Indication: Depression
     Dosage: UNK
     Route: 048
     Dates: start: 202410
  4. NADIXA [Concomitant]
     Indication: Prophylaxis
     Dosage: 1 APPLICATION, PRN
     Route: 061
     Dates: start: 20241111
  5. MINOCYCLINE [Concomitant]
     Active Substance: MINOCYCLINE HYDROCHLORIDE
     Indication: Prophylaxis
     Dosage: 50 MG, BID (2/DAY)
     Route: 048
     Dates: start: 20241111

REACTIONS (2)
  - Abdominal hernia [Recovered/Resolved]
  - Intestinal prolapse [Not Recovered/Not Resolved]

NARRATIVE: CASE EVENT DATE: 20250205
